FAERS Safety Report 10750840 (Version 1)
Quarter: 2015Q1

REPORT INFORMATION
  Report Type: Spontaneous
  Country: KR (occurrence: KR)
  Receive Date: 20150130
  Receipt Date: 20150130
  Transmission Date: 20150721
  Serious: Yes (Other)
  Sender: FDA-Public Use
  Company Number: KR-JNJFOC-20150110326

PATIENT
  Sex: Male

DRUGS (1)
  1. DURAGESIC [Suspect]
     Active Substance: FENTANYL
     Indication: MUSCULOSKELETAL PAIN
     Route: 062

REACTIONS (4)
  - Application site rash [Recovered/Resolved]
  - Monoplegia [Recovered/Resolved]
  - Application site swelling [Recovered/Resolved]
  - Application site pruritus [Recovered/Resolved]
